FAERS Safety Report 7216823-X (Version None)
Quarter: 2011Q1

REPORT INFORMATION
  Report Type: 
  Country: None (occurrence: None)
  Receive Date: 20110110
  Receipt Date: 20091230
  Transmission Date: 20110831
  Serious: No
  Sender: FDA-Public Use
  Company Number: 2010BI000824

PATIENT
  Age: 25 Year
  Sex: Female

DRUGS (3)
  1. PREDNISONE [Concomitant]
     Indication: PREMEDICATION
     Route: 048
  2. TYSABRI [Suspect]
     Indication: RELAPSING-REMITTING MULTIPLE SCLEROSIS
     Route: 042
     Dates: start: 20090501
  3. BENADRYL [Concomitant]
     Indication: PREMEDICATION
     Route: 048

REACTIONS (2)
  - FLUSHING [None]
  - URTICARIA [None]
